FAERS Safety Report 6099303-7 (Version None)
Quarter: 2009Q1

REPORT INFORMATION
  Report Type: 
  Country: None (occurrence: None)
  Receive Date: 20090303
  Receipt Date: 20090220
  Transmission Date: 20090719
  Serious: Yes (Hospitalization)
  Sender: FDA-Public Use
  Company Number: FR-WYE-G03164309

PATIENT
  Sex: Female

DRUGS (2)
  1. RAPAMUNE [Suspect]
     Indication: PROPHYLAXIS AGAINST TRANSPLANT REJECTION
     Route: 048
     Dates: start: 20081101
  2. NEORAL [Suspect]
     Route: 048
     Dates: end: 20080101

REACTIONS (8)
  - CYTOLYTIC HEPATITIS [None]
  - HAEMODYNAMIC INSTABILITY [None]
  - LIVEDO RETICULARIS [None]
  - OLIGURIA [None]
  - PNEUMOCYSTIS JIROVECI PNEUMONIA [None]
  - PULMONARY ALVEOLAR HAEMORRHAGE [None]
  - RESPIRATORY TRACT INFECTION FUNGAL [None]
  - TACHYCARDIA [None]
